FAERS Safety Report 4371337-X (Version None)
Quarter: 2004Q2

REPORT INFORMATION
  Report Type: 
  Country: None (occurrence: None)
  Receive Date: 20040603
  Receipt Date: 20040519
  Transmission Date: 20050107
  Serious: No
  Sender: FDA-Public Use
  Company Number: 2004UW05301

PATIENT
  Age: 66 Year
  Sex: Female

DRUGS (15)
  1. CRESTOR [Suspect]
     Dosage: 10 MG QD PO
     Route: 048
     Dates: start: 20030917, end: 20040107
  2. ULTRAM [Suspect]
     Dosage: 50 MG QID
     Route: 048
  3. AVANDIA [Suspect]
     Dosage: 8 MG QD
  4. GLUCOVANCE [Concomitant]
  5. NAPROXEN [Concomitant]
  6. TEARS NATURALE [Concomitant]
  7. VIOXX [Concomitant]
  8. XALATAN [Concomitant]
  9. NEXIUM [Concomitant]
  10. MECLIZINE [Concomitant]
  11. ADVIL [Concomitant]
  12. CARMOL [Concomitant]
  13. ASPIRIN [Concomitant]
  14. 32ATACAND [Concomitant]
  15. NEURONTIN [Concomitant]

REACTIONS (3)
  - AUTOIMMUNE HEPATITIS [None]
  - BACK PAIN [None]
  - DIZZINESS [None]
